FAERS Safety Report 10378624 (Version 3)
Quarter: 2014Q3

REPORT INFORMATION
  Report Type: Spontaneous
  Country: US (occurrence: None)
  Receive Date: 20140804
  Receipt Date: 20140926
  Transmission Date: 20150326
  Serious: Yes (Death)
  Sender: FDA-Public Use
  Company Number: 1713747-2014-99919

PATIENT
  Age: 70 Year
  Sex: Male
  Weight: 82 kg

DRUGS (4)
  1. LIBERTY CYCLER SET [Concomitant]
  2. DEFLEX SOLUTION 4.25% [Concomitant]
  3. LIBERTY CYCLER [Concomitant]
     Active Substance: DEVICE
  4. DELFLEX WITH DEXTROSE 2.5% [Suspect]
     Active Substance: CALCIUM CHLORIDE\DEXTROSE MONOHYDRATE\MAGNESIUM CHLORIDE\SODIUM CHLORIDE\SODIUM LACTATE
     Indication: RENAL FAILURE CHRONIC
     Dosage: 12.5L OVERNIGHT CYCLING
     Dates: start: 20140108, end: 20140123

REACTIONS (7)
  - Candida infection [None]
  - Death [None]
  - Fungal peritonitis [None]
  - Peritoneal cloudy effluent [None]
  - Crepitations [None]
  - Peritonitis [None]
  - Catheter site ulcer [None]

NARRATIVE: CASE EVENT DATE: 20140128
